FAERS Safety Report 24552261 (Version 1)
Quarter: 2024Q4

REPORT INFORMATION
  Report Type: Spontaneous
  Country: US (occurrence: US)
  Receive Date: 20241026
  Receipt Date: 20241026
  Transmission Date: 20250114
  Serious: No
  Sender: ABBVIE
  Company Number: US-ABBVIE-5972933

PATIENT
  Age: 23 Year
  Sex: Female

DRUGS (4)
  1. BOTOX COSMETIC [Suspect]
     Active Substance: ONABOTULINUMTOXINA
     Indication: Neck lift
     Dosage: TIME INTERVAL: AS NECESSARY
     Route: 065
     Dates: start: 20240828, end: 20240828
  2. BOTOX COSMETIC [Suspect]
     Active Substance: ONABOTULINUMTOXINA
     Indication: Neck lift
     Dosage: TIME INTERVAL: AS NECESSARY
     Route: 065
     Dates: start: 20240828, end: 20240828
  3. BOTOX COSMETIC [Suspect]
     Active Substance: ONABOTULINUMTOXINA
     Indication: Neck lift
     Dosage: TIME INTERVAL: AS NECESSARY
     Route: 065
     Dates: start: 2023, end: 2023
  4. BOTOX COSMETIC [Suspect]
     Active Substance: ONABOTULINUMTOXINA
     Indication: Neck lift
     Dosage: TIME INTERVAL: AS NECESSARY
     Route: 065
     Dates: start: 2023, end: 2023

REACTIONS (1)
  - Off label use [Unknown]

NARRATIVE: CASE EVENT DATE: 20230101
